FAERS Safety Report 11592259 (Version 4)
Quarter: 2015Q4

REPORT INFORMATION
  Report Type: Report from Study
  Country: DE (occurrence: DE)
  Receive Date: 20151005
  Receipt Date: 20151119
  Transmission Date: 20160304
  Serious: Yes (Hospitalization, Other)
  Sender: FDA-Public Use
  Company Number: DE-ROCHE-1641571

PATIENT
  Age: 68 Year
  Sex: Female
  Weight: 52 kg

DRUGS (11)
  1. VERGENTAN [Concomitant]
     Indication: PROPHYLAXIS OF NAUSEA AND VOMITING
     Dosage: PER CYCLE
     Route: 042
     Dates: start: 20150923, end: 20150930
  2. DEXAMETHASON [Concomitant]
     Active Substance: DEXAMETHASONE
     Indication: PROPHYLAXIS OF NAUSEA AND VOMITING
     Dosage: PER CYCLE
     Route: 042
     Dates: start: 20150923, end: 20150930
  3. FENISTIL (GERMANY) [Concomitant]
     Indication: PROPHYLAXIS OF NAUSEA AND VOMITING
     Dosage: PER CYCLE
     Route: 042
     Dates: start: 20150923, end: 20150930
  4. CLEXANE [Concomitant]
     Active Substance: ENOXAPARIN SODIUM
  5. BEVACIZUMAB [Suspect]
     Active Substance: BEVACIZUMAB
     Indication: BREAST CANCER
     Route: 042
     Dates: start: 20150923, end: 20151007
  6. PACLITAXEL. [Concomitant]
     Active Substance: PACLITAXEL
     Indication: BREAST CANCER
     Route: 042
     Dates: start: 20150923, end: 20151007
  7. RANTAC [Concomitant]
     Active Substance: RANITIDINE HYDROCHLORIDE
     Indication: PROPHYLAXIS OF NAUSEA AND VOMITING
     Dosage: PER CYCLE
     Route: 042
     Dates: start: 20150923, end: 20150930
  8. ZOMETA [Concomitant]
     Active Substance: ZOLEDRONIC ACID
     Indication: BREAST CANCER METASTATIC
     Route: 065
     Dates: start: 201406
  9. TOREM [Concomitant]
     Active Substance: TORSEMIDE
  10. PACLITAXEL. [Concomitant]
     Active Substance: PACLITAXEL
     Route: 042
     Dates: start: 20150930
  11. PANTOZOL [Concomitant]
     Active Substance: PANTOPRAZOLE SODIUM
     Route: 042

REACTIONS (9)
  - Hemiparesis [Recovering/Resolving]
  - Cardiac ventricular thrombosis [Recovered/Resolved]
  - Cerebral ischaemia [Recovered/Resolved with Sequelae]
  - Chronic obstructive pulmonary disease [Recovering/Resolving]
  - Cerebral artery occlusion [Not Recovered/Not Resolved]
  - Anaemia [Recovering/Resolving]
  - Stress cardiomyopathy [Recovered/Resolved]
  - Aphasia [Recovering/Resolving]
  - Peripheral arterial occlusive disease [Recovering/Resolving]

NARRATIVE: CASE EVENT DATE: 20151001
